FAERS Safety Report 4427609-3 (Version None)
Quarter: 2004Q3

REPORT INFORMATION
  Report Type: 
  Country: None (occurrence: None)
  Receive Date: 20040812
  Receipt Date: 20040803
  Transmission Date: 20050211
  Serious: Yes (Disabling)
  Sender: FDA-Public Use
  Company Number: CIP04001720

PATIENT
  Age: 66 Year
  Sex: Female

DRUGS (2)
  1. ACTONEL [Suspect]
     Indication: OSTEOPOROSIS
     Dosage: 2.5 MG, DAILY, ORAL
     Route: 048
     Dates: start: 20040506, end: 20040509
  2. ZANTAC [Suspect]
     Dosage: 300 MG, ORAL
     Route: 048
     Dates: start: 20040506

REACTIONS (3)
  - COMPRESSION FRACTURE [None]
  - HYPOAESTHESIA [None]
  - REFUSAL OF TREATMENT BY PATIENT [None]
